FAERS Safety Report 11324999 (Version 1)
Quarter: 2015Q3

REPORT INFORMATION
  Report Type: Spontaneous
  Country: US (occurrence: US)
  Receive Date: 20150730
  Receipt Date: 20150730
  Transmission Date: 20151125
  Serious: No
  Sender: FDA-Public Use
  Company Number: US-BAYER-2015-386666

PATIENT
  Age: 87 Year
  Sex: Female
  Weight: 65.76 kg

DRUGS (4)
  1. OXYTROL FOR WOMEN [Suspect]
     Active Substance: OXYBUTYNIN
     Indication: HYPERTONIC BLADDER
     Dosage: 1 DOSE, EVERY FOUR DAYS
     Route: 061
  2. LOSARTAN. [Concomitant]
     Active Substance: LOSARTAN
     Dosage: UNK
  3. PLAVIX [Concomitant]
     Active Substance: CLOPIDOGREL BISULFATE
     Dosage: UNK
  4. TOPROL XL [Concomitant]
     Active Substance: METOPROLOL SUCCINATE
     Dosage: UNK

REACTIONS (1)
  - Medication residue present [Not Recovered/Not Resolved]

NARRATIVE: CASE EVENT DATE: 20150707
